FAERS Safety Report 5498595-2 (Version None)
Quarter: 2007Q4

REPORT INFORMATION
  Report Type: 
  Country: None (occurrence: None)
  Receive Date: 20071025
  Receipt Date: 20071025
  Transmission Date: 20080405
  Serious: Yes (Hospitalization)
  Sender: FDA-Public Use
  Company Number: None

PATIENT
  Age: 56 Year
  Sex: Male

DRUGS (3)
  1. OXYCODONE AND ACETAMINOPHEN [Suspect]
     Indication: ANTICOAGULANT THERAPY
     Dosage: 1TAB  QID  PO
     Route: 048
     Dates: start: 20000613, end: 20071015
  2. OXYCODONE AND ACETAMINOPHEN [Suspect]
     Indication: PAIN
     Dosage: 1TAB  QID  PO
     Route: 048
     Dates: start: 20000613, end: 20071015
  3. WARFARIN SODIUM [Suspect]
     Dosage: 6MG  EVERY DAY  PO
     Route: 048
     Dates: start: 20020131, end: 20071015

REACTIONS (3)
  - INTERNATIONAL NORMALISED RATIO INCREASED [None]
  - LOSS OF CONSCIOUSNESS [None]
  - SELF-MEDICATION [None]
